FAERS Safety Report 4368647-9 (Version None)
Quarter: 2004Q2

REPORT INFORMATION
  Report Type: 
  Country: None (occurrence: None)
  Receive Date: 20040602
  Receipt Date: 20040517
  Transmission Date: 20050107
  Serious: Yes (Disabling)
  Sender: FDA-Public Use
  Company Number: FR-2004-025594

PATIENT
  Age: 38 Year
  Sex: Female

DRUGS (2)
  1. BETAFERON (INTERFERON BETA 1B) INJECTION, 250UG [Suspect]
     Indication: MULTIPLE SCLEROSIS
     Dosage: 8 MIU, EVERY 2D, SUBCUTANEOUS
     Route: 058
     Dates: start: 19980101, end: 20030301
  2. BETAFERON (INTERFERON BETA 1B) INJECTION, 250UG [Suspect]
     Indication: MULTIPLE SCLEROSIS
     Dosage: 8 MIU, EVERY 2D, SUBCUTANEOUS
     Route: 058
     Dates: start: 20031001

REACTIONS (3)
  - HYPOAESTHESIA [None]
  - IATROGENIC INJURY [None]
  - RADIAL NERVE PALSY [None]
